FAERS Safety Report 12781838 (Version 1)
Quarter: 2016Q3

REPORT INFORMATION
  Report Type: Report from Study
  Country: DE (occurrence: DE)
  Receive Date: 20160926
  Receipt Date: 20160926
  Transmission Date: 20161109
  Serious: Yes (Hospitalization, Other)
  Sender: FDA-Public Use
  Company Number: US-ASTRAZENECA-2016SF02139

PATIENT
  Age: 410 Day
  Sex: Male
  Weight: 1.1 kg

DRUGS (6)
  1. SYNAGIS [Suspect]
     Active Substance: PALIVIZUMAB
     Indication: PREMATURE BABY
     Dosage: 141 MG
     Route: 030
     Dates: start: 20101102, end: 20101102
  2. SYNAGIS [Suspect]
     Active Substance: PALIVIZUMAB
     Indication: PREMATURE BABY
     Dosage: 144 MG
     Route: 030
     Dates: start: 20110221, end: 20110221
  3. SYNAGIS [Suspect]
     Active Substance: PALIVIZUMAB
     Indication: PREMATURE BABY
     Dosage: 141 MG
     Route: 030
     Dates: start: 20101227, end: 20101227
  4. SYNAGIS [Suspect]
     Active Substance: PALIVIZUMAB
     Indication: PREMATURE BABY
     Dosage: 140 MG
     Route: 030
     Dates: start: 20110321, end: 20110321
  5. SYNAGIS [Suspect]
     Active Substance: PALIVIZUMAB
     Indication: PREMATURE BABY
     Dosage: 144 MG
     Route: 030
     Dates: start: 20101130, end: 20101130
  6. SYNAGIS [Suspect]
     Active Substance: PALIVIZUMAB
     Indication: PREMATURE BABY
     Dosage: 140 MG
     Route: 030
     Dates: start: 20110124, end: 20110124

REACTIONS (5)
  - Tachypnoea [Unknown]
  - Dyspnoea [Unknown]
  - Conjunctivitis [Unknown]
  - Pneumonia [Unknown]
  - Cyanosis [Unknown]

NARRATIVE: CASE EVENT DATE: 20101229
